APPROVED DRUG PRODUCT: OLANZAPINE
Active Ingredient: OLANZAPINE
Strength: 20MG
Dosage Form/Route: TABLET;ORAL
Application: A202295 | Product #006 | TE Code: AB
Applicant: ALKEM LABORATORIES LTD
Approved: Oct 20, 2015 | RLD: No | RS: No | Type: RX